FAERS Safety Report 8134380-0 (Version None)
Quarter: 2012Q1

REPORT INFORMATION
  Report Type: 
  Country: None (occurrence: None)
  Receive Date: 20120103
  Receipt Date: 20111109
  Transmission Date: 20120608
  Serious: No
  Sender: FDA-Public Use
  Company Number: AE-2011-003259

PATIENT
  Age: 48 Year
  Weight: 81.5 kg

DRUGS (5)
  1. AMBIEN [Concomitant]
  2. PEG-INTRON [Concomitant]
  3. CELEXA [Concomitant]
  4. RIBAVIRIN [Concomitant]
  5. INCIVEK [Suspect]
     Dosage: 2250 MG (750 MG, 1 IN 8 HR), ORAL
     Route: 048
     Dates: start: 20110926, end: 20111025

REACTIONS (6)
  - DECREASED APPETITE [None]
  - PAIN [None]
  - ASTHENIA [None]
  - DRUG INEFFECTIVE [None]
  - FATIGUE [None]
  - INSOMNIA [None]
